FAERS Safety Report 6266138-1 (Version None)
Quarter: 2009Q3

REPORT INFORMATION
  Report Type: 
  Country: None (occurrence: None)
  Receive Date: 20090709
  Receipt Date: 20090623
  Transmission Date: 20100115
  Serious: Yes (Other)
  Sender: FDA-Public Use
  Company Number: DSA_33948_2009

PATIENT
  Sex: Male

DRUGS (3)
  1. CARDIZEM CD [Suspect]
     Indication: DRUG USE FOR UNKNOWN INDICATION
     Dosage: 180 MG QD, 180 MG BID ORAL
     Route: 048
     Dates: end: 20090101
  2. CARDIZEM CD [Suspect]
     Indication: DRUG USE FOR UNKNOWN INDICATION
     Dosage: 180 MG QD, 180 MG BID ORAL
     Route: 048
     Dates: start: 20090601, end: 20090601
  3. INHIBACE /00845401/ [Concomitant]

REACTIONS (6)
  - BLOOD PRESSURE DECREASED [None]
  - CARDIAC VALVE RUPTURE [None]
  - DIZZINESS [None]
  - FEELING COLD [None]
  - LOSS OF CONSCIOUSNESS [None]
  - VISION BLURRED [None]
